FAERS Safety Report 24330786 (Version 1)
Quarter: 2024Q3

REPORT INFORMATION
  Report Type: Spontaneous
  Country: CN (occurrence: CN)
  Receive Date: 20240918
  Receipt Date: 20240918
  Transmission Date: 20241017
  Serious: Yes (Hospitalization)
  Sender: BEIGENE
  Company Number: CN-BEIGENE-BGN-2024-014382

PATIENT

DRUGS (3)
  1. TISLELIZUMAB [Suspect]
     Active Substance: TISLELIZUMAB
     Indication: Hodgkin^s disease
     Dosage: 200 MILLIGRAM
     Route: 041
     Dates: start: 20240809
  2. TISLELIZUMAB [Suspect]
     Active Substance: TISLELIZUMAB
     Dosage: 200 MILLIGRAM
     Route: 041
     Dates: start: 20240830
  3. SODIUM CHLORIDE [Concomitant]
     Active Substance: SODIUM CHLORIDE
     Indication: Vehicle solution use
     Dosage: 100 MILLILITER
     Route: 041
     Dates: start: 20240809

REACTIONS (4)
  - Myalgia [Recovering/Resolving]
  - Palpitations [Recovering/Resolving]
  - Hyperthyroidism [Recovering/Resolving]
  - Myocardial injury [Recovering/Resolving]

NARRATIVE: CASE EVENT DATE: 20240830
